FAERS Safety Report 10063457 (Version 1)
Quarter: 2014Q1

REPORT INFORMATION
  Report Type: Spontaneous
  Country: US (occurrence: None)
  Receive Date: 20140327
  Receipt Date: 20140327
  Transmission Date: 20141002
  Serious: Yes (Other)
  Sender: FDA-Public Use
  Company Number: GR-13-010

PATIENT
  Sex: Female

DRUGS (2)
  1. CANDIDA ALBICANS ALLERGENIC EXTRACTS 5 ML, 1000 PNU [Suspect]
     Indication: SKIN PAPILLOMA
     Dosage: 0.1 CC
  2. CANDIDA ALBICANS ALLERGENIC EXTRACT 1:1000 W/V [Suspect]
     Indication: SKIN PAPILLOMA
     Dosage: 0.1 CC

REACTIONS (3)
  - Pain [None]
  - Discomfort [None]
  - Swelling [None]
